FAERS Safety Report 11247383 (Version 1)
Quarter: 2015Q3

REPORT INFORMATION
  Report Type: Spontaneous
  Country: GB (occurrence: GB)
  Receive Date: 20150708
  Receipt Date: 20150708
  Transmission Date: 20151125
  Serious: Yes (Death, Other)
  Sender: FDA-Public Use
  Company Number: GB-PFIZER INC-2015223826

PATIENT
  Age: 75 Year
  Sex: Female

DRUGS (1)
  1. SUTENT [Suspect]
     Active Substance: SUNITINIB MALATE
     Dosage: 15 MG, CYCLIC (CYCLE 4/2)
     Route: 048

REACTIONS (3)
  - Death [Fatal]
  - General physical health deterioration [Unknown]
  - Haemorrhage [Unknown]
